FAERS Safety Report 23999391 (Version 1)
Quarter: 2024Q2

REPORT INFORMATION
  Report Type: Spontaneous
  Country: CN (occurrence: CN)
  Receive Date: 20240621
  Receipt Date: 20240621
  Transmission Date: 20240715
  Serious: Yes (Hospitalization)
  Sender: FDA-Public Use
  Company Number: CN-PFIZER INC-PV202400081230

PATIENT
  Age: 76 Year
  Sex: Male

DRUGS (1)
  1. CIBINQO [Suspect]
     Active Substance: ABROCITINIB
     Dosage: 200 MG, 1X/DAY
     Route: 048
     Dates: start: 20240419, end: 2024

REACTIONS (1)
  - Dyspnoea [Recovered/Resolved]

NARRATIVE: CASE EVENT DATE: 20240401
